FAERS Safety Report 6565661-X (Version None)
Quarter: 2010Q1

REPORT INFORMATION
  Report Type: 
  Country: None (occurrence: None)
  Receive Date: 20100201
  Receipt Date: 20100127
  Transmission Date: 20100710
  Serious: Yes (Death)
  Sender: FDA-Public Use
  Company Number: US-GENENTECH-297425

PATIENT
  Age: 61 Year
  Weight: 58.9 kg

DRUGS (1)
  1. TNKASE [Suspect]
     Indication: ISCHAEMIC STROKE
     Dosage: 30 MG, SINGLE
     Route: 042
     Dates: start: 20100120

REACTIONS (1)
  - HAEMORRHAGE INTRACRANIAL [None]
